FAERS Safety Report 7456495-2 (Version None)
Quarter: 2011Q2

REPORT INFORMATION
  Report Type: 
  Country: None (occurrence: None)
  Receive Date: 20110503
  Receipt Date: 20110421
  Transmission Date: 20111010
  Serious: Yes (Other)
  Sender: FDA-Public Use
  Company Number: US-CELGENEUS-163-21880-11022313

PATIENT
  Sex: Male

DRUGS (8)
  1. NABUMETONE [Concomitant]
     Dosage: 750 MILLIGRAM
     Route: 048
  2. OSTEO BI-FLEX PLUS [Concomitant]
     Dosage: 4
     Route: 048
  3. REVLIMID [Suspect]
     Indication: MYELOFIBROSIS
     Dosage: 25 MILLIGRAM
     Route: 048
     Dates: start: 20110201, end: 20110201
  4. METFORMIN HCL [Concomitant]
     Dosage: 500 MILLIGRAM
     Route: 048
  5. IRON [Concomitant]
     Dosage: 325 MILLIGRAM
     Route: 048
  6. TRIAMCINOLONE [Concomitant]
     Dosage: .1 PERCENT
     Route: 061
  7. HYDROCORTISONE [Concomitant]
     Dosage: 2.5 PERCENT
     Route: 061
  8. NALTREXONE HYDROCHLORIDE [Concomitant]
     Dosage: 50 MILLIGRAM
     Route: 048

REACTIONS (1)
  - BONE MARROW FAILURE [None]
